FAERS Safety Report 12944765 (Version 1)
Quarter: 2016Q4

REPORT INFORMATION
  Report Type: Spontaneous
  Country: US (occurrence: US)
  Receive Date: 20161115
  Receipt Date: 20161115
  Transmission Date: 20170207
  Serious: Yes (Hospitalization)
  Sender: FDA-Public Use
  Company Number: US-SA-2016SA203731

PATIENT
  Age: 64 Year
  Sex: Female

DRUGS (7)
  1. TICAGRELOR [Concomitant]
     Active Substance: TICAGRELOR
  2. CLOPIDOGREL BISULFATE. [Suspect]
     Active Substance: CLOPIDOGREL BISULFATE
     Indication: ANTIPLATELET THERAPY
     Dosage: LOADING
     Route: 065
  3. BIVALIRUDIN. [Concomitant]
     Active Substance: BIVALIRUDIN
  4. CLOPIDOGREL BISULFATE. [Suspect]
     Active Substance: CLOPIDOGREL BISULFATE
     Indication: ANTIPLATELET THERAPY
     Route: 065
  5. ASPIRIN. [Concomitant]
     Active Substance: ASPIRIN
  6. BIVALIRUDIN. [Concomitant]
     Active Substance: BIVALIRUDIN
     Route: 040
  7. HEPARIN [Concomitant]
     Active Substance: HEPARIN SODIUM
     Dosage: DOSE:5000 UNIT(S)

REACTIONS (4)
  - Electrocardiogram ST segment elevation [Recovered/Resolved]
  - Drug ineffective [Unknown]
  - Vascular stent thrombosis [Recovered/Resolved]
  - Chest pain [Recovered/Resolved]
